FAERS Safety Report 6466895-5 (Version None)
Quarter: 2009Q4

REPORT INFORMATION
  Report Type: 
  Country: None (occurrence: None)
  Receive Date: 20091202
  Receipt Date: 20091130
  Transmission Date: 20100525
  Serious: Yes (Hospitalization)
  Sender: FDA-Public Use
  Company Number: A0832231A

PATIENT
  Age: 64 Year
  Sex: Female

DRUGS (4)
  1. ALLI [Suspect]
     Route: 048
     Dates: start: 20091126
  2. TOPROL-XL [Concomitant]
     Route: 048
  3. ENALAPRIL MALEATE [Concomitant]
     Route: 048
  4. ZOCOR [Concomitant]
     Indication: BLOOD CHOLESTEROL INCREASED
     Route: 048

REACTIONS (8)
  - CONDITION AGGRAVATED [None]
  - HEADACHE [None]
  - HYPERTENSION [None]
  - PANCREATIC CYST [None]
  - PSEUDOCYST [None]
  - SURGERY [None]
  - TREATMENT NONCOMPLIANCE [None]
  - WAIST CIRCUMFERENCE INCREASED [None]
